FAERS Safety Report 5722257-7 (Version None)
Quarter: 2008Q2

REPORT INFORMATION
  Report Type: 
  Country: None (occurrence: None)
  Receive Date: 20080429
  Receipt Date: 20070925
  Transmission Date: 20081010
  Serious: No
  Sender: FDA-Public Use
  Company Number: US-ASTRAZENECA-2007UW22496

PATIENT
  Age: 23 Year
  Sex: Male
  Weight: 75.3 kg

DRUGS (4)
  1. NEXIUM [Suspect]
     Indication: GASTRIC DISORDER
     Route: 048
     Dates: start: 20070825
  2. NEXIUM [Suspect]
     Indication: THROAT IRRITATION
     Route: 048
     Dates: start: 20070825
  3. NAPROXEN [Concomitant]
  4. HYDROCODONE BITARTRATE [Concomitant]

REACTIONS (3)
  - HEADACHE [None]
  - MEDICATION ERROR [None]
  - TREMOR [None]
